FAERS Safety Report 14407082 (Version 1)
Quarter: 2018Q1

REPORT INFORMATION
  Report Type: Spontaneous
  Country: US (occurrence: US)
  Receive Date: 20180118
  Receipt Date: 20180118
  Transmission Date: 20180509
  Serious: Yes (Other)
  Sender: FDA-Public Use
  Company Number: US-BRISTOL-MYERS SQUIBB COMPANY-BMS-2018-000933

PATIENT
  Sex: Male
  Weight: 83.9 kg

DRUGS (1)
  1. COUMADIN [Suspect]
     Active Substance: WARFARIN SODIUM
     Indication: AORTIC VALVE REPLACEMENT
     Dosage: 1 DF, UNK
     Route: 048

REACTIONS (3)
  - International normalised ratio fluctuation [Unknown]
  - Prostatomegaly [Unknown]
  - Haemorrhage urinary tract [Unknown]
